FAERS Safety Report 4462211-9 (Version None)
Quarter: 2004Q3

REPORT INFORMATION
  Report Type: 
  Country: None (occurrence: None)
  Receive Date: 20040929
  Receipt Date: 20040921
  Transmission Date: 20050211
  Serious: Yes (Hospitalization)
  Sender: FDA-Public Use
  Company Number: NL-ROCHE-381053

PATIENT
  Age: 11 Year
  Sex: Male

DRUGS (3)
  1. MYCOPHENOLATE MOFETIL [Suspect]
     Route: 065
  2. CSA [Suspect]
     Dosage: TITRATED DOSAGE TO SERUM CONCENTRATION LEVEL OF 100 MG/L.
     Route: 065
  3. PREDNISONE [Suspect]
     Route: 065

REACTIONS (4)
  - BRONCHIECTASIS [None]
  - EXERCISE TOLERANCE DECREASED [None]
  - HAEMOPHILUS INFECTION [None]
  - SINUSITIS [None]
